FAERS Safety Report 21797515 (Version 7)
Quarter: 2024Q1

REPORT INFORMATION
  Report Type: Spontaneous
  Country: CA (occurrence: CA)
  Receive Date: 20221230
  Receipt Date: 20240305
  Transmission Date: 20240410
  Serious: Yes (Other)
  Sender: FDA-Public Use
  Company Number: CA-CELLTRION INC.-2022CA013770

PATIENT

DRUGS (7)
  1. INFLECTRA [Suspect]
     Active Substance: INFLIXIMAB-DYYB
     Indication: Crohn^s disease
     Dosage: 263 MG, EVERY 6 WEEK
     Route: 042
     Dates: start: 20220929
  2. INFLECTRA [Suspect]
     Active Substance: INFLIXIMAB-DYYB
     Dosage: 263 MG, EVERY 6 WEEK
     Route: 042
     Dates: start: 20221110
  3. INFLECTRA [Suspect]
     Active Substance: INFLIXIMAB-DYYB
     Dosage: 263 MG, EVERY 6 WEEK
     Route: 042
  4. INFLECTRA [Suspect]
     Active Substance: INFLIXIMAB-DYYB
     Dosage: 263 MG, 8 WEEKS AND 1 DAY AFTER LAST INFUSION
     Route: 042
     Dates: start: 20221221
  5. INFLECTRA [Suspect]
     Active Substance: INFLIXIMAB-DYYB
     Dosage: 263 MG, EVERY 6 WEEK
     Route: 042
     Dates: start: 20230217
  6. INFLECTRA [Suspect]
     Active Substance: INFLIXIMAB-DYYB
     Dosage: 263 MG, EVERY 6 WEEK
     Route: 042
     Dates: start: 20231102
  7. INFLECTRA [Suspect]
     Active Substance: INFLIXIMAB-DYYB
     Dosage: 263 MG, EVERY 6 WEEK
     Route: 042
     Dates: start: 20231214

REACTIONS (5)
  - Intestinal obstruction [Recovering/Resolving]
  - Breast cancer [Recovered/Resolved]
  - Off label use [Unknown]
  - Off label use [Unknown]
  - Intentional product use issue [Unknown]

NARRATIVE: CASE EVENT DATE: 20220101
